FAERS Safety Report 8988485 (Version 1)
Quarter: 2012Q4

REPORT INFORMATION
  Report Type: Spontaneous
  Country: US (occurrence: None)
  Receive Date: 20121224
  Receipt Date: 20121224
  Transmission Date: 20130627
  Serious: Yes (Hospitalization)
  Sender: FDA-Public Use
  Company Number: None

PATIENT
  Age: 77 Year
  Sex: Male
  Weight: 74.3 kg

DRUGS (1)
  1. PRADAXA [Suspect]
     Indication: ATRIAL FIBRILLATION
     Dosage: 150mg BID po
     Route: 048
     Dates: start: 20120901, end: 20121216

REACTIONS (6)
  - Asthenia [None]
  - Feeling abnormal [None]
  - Faeces discoloured [None]
  - Haemoglobin decreased [None]
  - Haematocrit decreased [None]
  - Renal impairment [None]
